FAERS Safety Report 9081249 (Version 1)
Quarter: 2013Q1

REPORT INFORMATION
  Report Type: Spontaneous
  Country: US (occurrence: US)
  Receive Date: 20130218
  Receipt Date: 20130218
  Transmission Date: 20140127
  Serious: Yes (Other)
  Sender: FDA-Public Use
  Company Number: US-PFIZER INC-2013060874

PATIENT
  Age: 58 Year
  Sex: Male
  Weight: 74.83 kg

DRUGS (8)
  1. CHANTIX [Suspect]
     Indication: SMOKING CESSATION THERAPY
     Dosage: 0.5 MG, 1X/DAY
     Route: 048
     Dates: start: 20130131, end: 2013
  2. CHANTIX [Suspect]
     Dosage: 0.5 MG, 2X/DAY
     Route: 048
     Dates: start: 2013
  3. METHADONE [Concomitant]
     Dosage: 15 MG, UNK
  4. LYRICA [Concomitant]
     Dosage: UNK
  5. DIAZEPAM [Concomitant]
     Indication: ANXIETY
     Dosage: 5 MG, 2X/DAY
  6. ARICEPT [Concomitant]
     Dosage: 5 MG, UNK
  7. ALPRAZOLAM [Concomitant]
     Dosage: UNK
  8. NORVASC [Concomitant]
     Dosage: UNK

REACTIONS (6)
  - Hallucination [Unknown]
  - Nightmare [Unknown]
  - Somnolence [Unknown]
  - Impaired driving ability [Unknown]
  - Hyperhidrosis [Unknown]
  - Weight increased [Unknown]
